FAERS Safety Report 9458431 (Version 1)
Quarter: 2013Q3

REPORT INFORMATION
  Report Type: Spontaneous
  Country: AU (occurrence: AU)
  Receive Date: 20130814
  Receipt Date: 20130814
  Transmission Date: 20140515
  Serious: Yes (Hospitalization)
  Sender: FDA-Public Use
  Company Number: PHHY2013AU084849

PATIENT
  Age: 76 Year
  Sex: Female

DRUGS (5)
  1. MIRTAZAPINE [Suspect]
  2. SOTALOL [Concomitant]
  3. DIGOXIN [Concomitant]
  4. METHOTREXATE [Concomitant]
  5. PREDNISOLONE [Concomitant]

REACTIONS (2)
  - Dyslipidaemia [Recovering/Resolving]
  - Weight increased [Unknown]
